FAERS Safety Report 17597312 (Version 1)
Quarter: 2020Q1

REPORT INFORMATION
  Report Type: Spontaneous
  Country: JP (occurrence: JP)
  Receive Date: 20200330
  Receipt Date: 20200330
  Transmission Date: 20200409
  Serious: Yes (Death)
  Sender: FDA-Public Use
  Company Number: JP-BAUSCH-BL-2020-009305

PATIENT
  Age: 8 Decade

DRUGS (2)
  1. SODIUM PICOSULFATE HYDRATE [Suspect]
     Active Substance: SODIUM PICOSULFATE
     Indication: BOWEL PREPARATION
     Route: 048
  2. MOVIPREP [Suspect]
     Active Substance: ASCORBIC ACID\POLYETHYLENE GLYCOL 3350\POTASSIUM CHLORIDE\SODIUM ASCORBATE\SODIUM CHLORIDE\SODIUM SULFATE
     Indication: BOWEL PREPARATION
     Dosage: 1000 ML PLUS ADDITIONALLY 600 ML
     Route: 048

REACTIONS (6)
  - Septic shock [Fatal]
  - Abdominal pain [Unknown]
  - Vomiting [Unknown]
  - Intestinal perforation [Fatal]
  - Depressed level of consciousness [Unknown]
  - Peritonitis [Fatal]
